FAERS Safety Report 6333428-3 (Version None)
Quarter: 2009Q3

REPORT INFORMATION
  Report Type: 
  Country: None (occurrence: None)
  Receive Date: 20090828
  Receipt Date: 20090817
  Transmission Date: 20100115
  Serious: Yes (Death)
  Sender: FDA-Public Use
  Company Number: JP-ELI_LILLY_AND_COMPANY-JP200908003605

PATIENT
  Age: 51 Year
  Sex: Female

DRUGS (2)
  1. ZYPREXA [Suspect]
     Indication: SCHIZOPHRENIA
     Dosage: 15 MG, DAILY (1/D)
     Route: 048
     Dates: start: 20090119
  2. WYPAX [Concomitant]
     Indication: SCHIZOPHRENIA
     Dosage: 1.5 MG, DAILY (1/D)
     Route: 048
     Dates: start: 20090107

REACTIONS (1)
  - COMPLETED SUICIDE [None]
